FAERS Safety Report 6505325-1 (Version None)
Quarter: 2009Q4

REPORT INFORMATION
  Report Type: 
  Country: None (occurrence: None)
  Receive Date: 20091218
  Receipt Date: 20091210
  Transmission Date: 20100525
  Serious: Yes (Other)
  Sender: FDA-Public Use
  Company Number: US-JNJFOC-20090906825

PATIENT
  Sex: Female
  Weight: 79.38 kg

DRUGS (16)
  1. DURAGESIC-100 [Suspect]
     Indication: DRUG USE FOR UNKNOWN INDICATION
     Route: 062
  2. DURAGESIC-100 [Suspect]
     Route: 062
  3. DURAGESIC-100 [Suspect]
     Indication: PAIN
     Route: 062
     Dates: start: 20090901, end: 20091101
  4. SYNTHROID [Concomitant]
     Route: 065
     Dates: start: 20090501
  5. CRYSTALLINE VIT B12 INJ [Concomitant]
     Indication: GASTRIC BYPASS
     Route: 065
  6. CYMBALTA [Concomitant]
     Indication: BIPOLAR II DISORDER
     Route: 065
  7. CYMBALTA [Concomitant]
     Indication: FIBROMYALGIA
     Route: 065
  8. LAMICTAL [Concomitant]
     Indication: BIPOLAR DISORDER
     Route: 065
  9. ZANAFLEX [Concomitant]
     Indication: SPINAL DISORDER
     Route: 065
  10. ZANAFLEX [Concomitant]
     Indication: FIBROMYALGIA
     Route: 065
  11. VITAMIN D [Concomitant]
     Indication: GASTRIC BYPASS
     Route: 065
  12. ALLERGY MEDICINES [Concomitant]
     Route: 050
  13. METFORMIN HCL [Concomitant]
     Indication: POLYCYSTIC OVARIES
     Route: 065
  14. PROMETRIUM [Concomitant]
     Route: 065
  15. UNKNOWN MEDICATION [Concomitant]
     Route: 065
  16. ADDERALL 10 [Concomitant]
     Indication: SLEEP APNOEA SYNDROME
     Route: 065

REACTIONS (14)
  - ABASIA [None]
  - HYPERTENSION [None]
  - INAPPROPRIATE SCHEDULE OF DRUG ADMINISTRATION [None]
  - INFLUENZA LIKE ILLNESS [None]
  - MENTAL IMPAIRMENT [None]
  - MIGRAINE [None]
  - MOANING [None]
  - MUSCLE TIGHTNESS [None]
  - NAUSEA [None]
  - PAIN [None]
  - PARAESTHESIA [None]
  - PRODUCT QUALITY ISSUE [None]
  - TREMOR [None]
  - WITHDRAWAL SYNDROME [None]
